FAERS Safety Report 7988256-X (Version None)
Quarter: 2011Q4

REPORT INFORMATION
  Report Type: 
  Country: None (occurrence: None)
  Receive Date: 20111216
  Receipt Date: 20111210
  Transmission Date: 20120403
  Serious: Yes (Other)
  Sender: FDA-Public Use
  Company Number: US-JNJFOC-20111205258

PATIENT
  Sex: Female

DRUGS (1)
  1. SIMPONI [Suspect]
     Indication: RHEUMATOID ARTHRITIS
     Route: 058
     Dates: start: 20110701, end: 20110101

REACTIONS (7)
  - RHEUMATOID ARTHRITIS [None]
  - COLONIC POLYP [None]
  - WHITE BLOOD CELL COUNT INCREASED [None]
  - INFECTION [None]
  - DRUG DOSE OMISSION [None]
  - OEDEMA PERIPHERAL [None]
  - ERYTHEMA [None]
